FAERS Safety Report 12785326 (Version 1)
Quarter: 2016Q3

REPORT INFORMATION
  Report Type: Spontaneous
  Country: US (occurrence: US)
  Receive Date: 20160927
  Receipt Date: 20160927
  Transmission Date: 20161109
  Serious: No
  Sender: FDA-Public Use
  Company Number: US-FRI-1000082123

PATIENT
  Age: 79 Year
  Sex: Male

DRUGS (4)
  1. DIABETIC MED (NOT SPECIFIED) [Concomitant]
     Indication: DIABETES MELLITUS
     Dosage: UNK
  2. BP MED (NOT SPECIFIED) [Concomitant]
     Indication: HYPERTENSION
     Dosage: UNK
  3. LINZESS [Suspect]
     Active Substance: LINACLOTIDE
     Indication: CONSTIPATION
     Dosage: 145 ?G, QD
     Route: 048
     Dates: start: 20160106
  4. CHOLESTEROL MED (NO SPECIFIED) [Concomitant]
     Indication: HYPERLIPIDAEMIA
     Dosage: UNK

REACTIONS (2)
  - Constipation [Not Recovered/Not Resolved]
  - Drug ineffective [Not Recovered/Not Resolved]

NARRATIVE: CASE EVENT DATE: 201601
